FAERS Safety Report 19994895 (Version 2)
Quarter: 2021Q4

REPORT INFORMATION
  Report Type: Spontaneous
  Country: US (occurrence: US)
  Receive Date: 20211026
  Receipt Date: 20211101
  Transmission Date: 20220303
  Serious: No
  Sender: FDA-Public Use
  Company Number: US-BEH-2021136972

PATIENT
  Sex: Female

DRUGS (4)
  1. HIZENTRA [Suspect]
     Active Substance: HUMAN IMMUNOGLOBULIN G
     Indication: Immunodeficiency
     Dosage: 2 GRAM, QW
     Route: 058
     Dates: start: 20210408
  2. CLONAZEPAM [Concomitant]
     Active Substance: CLONAZEPAM
  3. CLONIDINE [Concomitant]
     Active Substance: CLONIDINE
  4. VITAMIN D3 [Concomitant]
     Active Substance: CHOLECALCIFEROL

REACTIONS (2)
  - Cyst [Recovered/Resolved]
  - Product dispensing issue [Recovered/Resolved]
